FAERS Safety Report 8268124-9 (Version None)
Quarter: 2012Q2

REPORT INFORMATION
  Report Type: 
  Country: None (occurrence: None)
  Receive Date: 20120409
  Receipt Date: 20120329
  Transmission Date: 20120825
  Serious: Yes (Hospitalization, Other)
  Sender: FDA-Public Use
  Company Number: US-ELI_LILLY_AND_COMPANY-US201203000652

PATIENT
  Sex: Female

DRUGS (20)
  1. FORTEO [Suspect]
     Indication: OSTEOPOROSIS
     Dosage: 20 UG, QD
     Route: 058
     Dates: start: 20110101
  2. FORTEO [Suspect]
     Dosage: 20 UG, QD
     Route: 058
  3. COUMADIN [Concomitant]
     Indication: PULMONARY EMBOLISM
  4. SINGULAIR [Concomitant]
  5. CELEBREX [Concomitant]
  6. PLAQUENIL [Concomitant]
  7. ADVAIR DISKUS 100/50 [Concomitant]
  8. SPIRIVA [Concomitant]
  9. ASTEPRO [Concomitant]
     Route: 045
  10. PRILOSEC [Concomitant]
  11. MECLIZINE [Concomitant]
  12. FORTEO [Suspect]
     Dosage: 20 UG, QD
     Route: 058
  13. VITAMIN B-12 [Concomitant]
  14. MULTI-VITAMIN [Concomitant]
  15. FLONASE [Concomitant]
     Route: 045
  16. PREDNISONE [Concomitant]
  17. NEURONTIN [Concomitant]
  18. CALCIUM CARBONATE [Concomitant]
  19. COREG [Concomitant]
  20. COLESTIPOL HYDROCHLORIDE [Concomitant]

REACTIONS (9)
  - FALL [None]
  - FRACTURED COCCYX [None]
  - PSEUDOMONAS INFECTION [None]
  - CHEST DISCOMFORT [None]
  - HAEMORRHAGE [None]
  - SYSTEMIC LUPUS ERYTHEMATOSUS [None]
  - PLEURAL EFFUSION [None]
  - RESPIRATORY TRACT INFECTION FUNGAL [None]
  - ANTIPHOSPHOLIPID SYNDROME [None]
